FAERS Safety Report 19776918 (Version 1)
Quarter: 2021Q3

REPORT INFORMATION
  Report Type: Spontaneous
  Country: US (occurrence: US)
  Receive Date: 20210902
  Receipt Date: 20210902
  Transmission Date: 20211014
  Serious: No
  Sender: FDA-Public Use
  Company Number: US-DRREDDYS-SPO/USA/21/0139611

PATIENT
  Age: 73 Year
  Sex: Male
  Weight: 85.5 kg

DRUGS (1)
  1. DOANS EXTRA STRENGTH [Suspect]
     Active Substance: MAGNESIUM SALICYLATE
     Indication: BACK PAIN
     Dates: start: 20210831

REACTIONS (2)
  - Product quality issue [Unknown]
  - Drug ineffective [Unknown]
